FAERS Safety Report 18001487 (Version 1)
Quarter: 2020Q3

REPORT INFORMATION
  Report Type: Spontaneous
  Country: US (occurrence: US)
  Receive Date: 20200709
  Receipt Date: 20200709
  Transmission Date: 20201103
  Serious: Yes (Other)
  Sender: FDA-Public Use
  Company Number: US-ROCHE-2638139

PATIENT
  Age: 62 Year
  Sex: Female

DRUGS (1)
  1. OCREVUS [Suspect]
     Active Substance: OCRELIZUMAB
     Indication: PRIMARY PROGRESSIVE MULTIPLE SCLEROSIS
     Dosage: SUBSEQUENT DOSES OF OCRELIZUMAB ON 06/JUN/2019, 17/DEC/2019 AND 02/JAN/2020.
     Route: 065
     Dates: start: 20190506

REACTIONS (1)
  - Malignant melanoma [Recovering/Resolving]
